FAERS Safety Report 7454002-1 (Version None)
Quarter: 2011Q2

REPORT INFORMATION
  Report Type: 
  Country: None (occurrence: None)
  Receive Date: 20110502
  Receipt Date: 20110426
  Transmission Date: 20111010
  Serious: Yes (Hospitalization)
  Sender: FDA-Public Use
  Company Number: JP-ROCHE-773669

PATIENT
  Sex: Female

DRUGS (26)
  1. TOCILIZUMAB [Suspect]
     Route: 041
     Dates: start: 20110204, end: 20110204
  2. POLARAMINE [Concomitant]
     Route: 048
     Dates: start: 20110216, end: 20110219
  3. ONEALFA [Concomitant]
     Dosage: DOSE FORM: PERORAL AGENT
     Route: 048
     Dates: start: 20110311
  4. PREDNISOLONE [Concomitant]
     Dosage: DOSE FORM: PERORAL AGENT
     Route: 048
     Dates: start: 20110317, end: 20110325
  5. TOCILIZUMAB [Suspect]
     Route: 041
     Dates: start: 20110411, end: 20110418
  6. PREDNISOLONE [Concomitant]
     Dosage: DOSE FORM: PERORAL AGENT
     Route: 048
     Dates: start: 20110412, end: 20110418
  7. IBRUPROFEN [Concomitant]
     Dosage: DOSE FORM: PERORAL AGENT
     Route: 048
     Dates: start: 20110108
  8. LATANOPROST [Concomitant]
     Dosage: DOSAGE UNCERTAIN
     Route: 047
     Dates: start: 20110108
  9. FAMOTIDINE [Concomitant]
     Dosage: DOSE FORM: PERORAL AGENT
     Route: 048
     Dates: start: 20110115
  10. TOCILIZUMAB [Suspect]
     Route: 041
     Dates: start: 20110121, end: 20110128
  11. PREDNISOLONE [Concomitant]
     Dosage: DOSE FORM: PERORAL AGENT
     Route: 048
     Dates: start: 20110326, end: 20110329
  12. DIAMOX [Concomitant]
     Dosage: DOSE FORM: PERORAL AGENT
     Route: 050
     Dates: start: 20110108
  13. TRUSOPT [Concomitant]
     Dosage: DOSAGE UNCERTAIN
     Route: 047
     Dates: start: 20110108
  14. DIPIVEFRIN HCL [Concomitant]
     Dosage: DOSAGE UNCERTAIN
     Route: 047
     Dates: start: 20110303
  15. PREDNISOLONE [Concomitant]
     Dosage: DOSE FORM: PERORAL AGENT
     Route: 048
     Dates: start: 20110330, end: 20110404
  16. CARTEOLOL HYDROCHLORIDE [Concomitant]
     Dosage: DOSAGE UNCERTAIN
     Route: 047
     Dates: start: 20110108
  17. POTASSIUM GLUCONATE TAB [Concomitant]
     Dosage: DOSE FORM: PERORAL AGENT
     Route: 048
     Dates: start: 20110210
  18. FERROUS CITRATE [Concomitant]
     Dosage: DOSE FORM: PERORAL AGENT
     Route: 048
     Dates: start: 20110418
  19. PREDNISOLONE [Concomitant]
     Dosage: DOSE FORM: PERORAL AGENT
     Route: 048
     Dates: start: 20110301, end: 20110316
  20. PREDNISOLONE [Concomitant]
     Dosage: DOSE FORM: PERORAL AGENT
     Route: 048
     Dates: start: 20110405, end: 20110411
  21. MIYA BM [Concomitant]
     Dosage: DOSE FORM: PERORAL AGENT
     Route: 048
     Dates: start: 20110215
  22. TOCILIZUMAB [Suspect]
     Route: 041
     Dates: start: 20110210, end: 20110404
  23. DEXAMETHASONE PALMITATE [Concomitant]
     Route: 041
     Dates: start: 20110109, end: 20110203
  24. DEXAMETHASONE PALMITATE [Concomitant]
     Route: 041
     Dates: start: 20110204, end: 20110228
  25. PREDNISOLONE [Concomitant]
     Dosage: DOSE FORM: PERORAL AGENT
     Route: 048
     Dates: start: 20110419
  26. ACTONEL [Concomitant]
     Route: 048
     Dates: start: 20110311

REACTIONS (2)
  - C-REACTIVE PROTEIN INCREASED [None]
  - INFUSION RELATED REACTION [None]
